FAERS Safety Report 6615534-9 (Version None)
Quarter: 2010Q1

REPORT INFORMATION
  Report Type: 
  Country: None (occurrence: None)
  Receive Date: 20100305
  Receipt Date: 20100224
  Transmission Date: 20100710
  Serious: Yes (Hospitalization)
  Sender: FDA-Public Use
  Company Number: IN-ROCHE-673609

PATIENT
  Sex: Female
  Weight: 59 kg

DRUGS (9)
  1. TOCILIZUMAB [Suspect]
     Indication: RHEUMATOID ARTHRITIS
     Dosage: FORM: INFUSION, DATE OF LAST DOSE PRIOR TO EVENT: 11 DEC 2009
     Route: 042
  2. METFORMIN HYDROCHLORIDE [Concomitant]
  3. PIOGLITAZONE [Concomitant]
  4. METHOTREXATE [Concomitant]
  5. GLIMEPIRIDE [Concomitant]
  6. HCQS [Concomitant]
  7. PREDNISOLONE [Concomitant]
  8. FOLVITE [Concomitant]
  9. OMEPRAZOLE [Concomitant]

REACTIONS (1)
  - CHOLECYSTITIS ACUTE [None]
